FAERS Safety Report 4957747-8 (Version None)
Quarter: 2006Q1

REPORT INFORMATION
  Report Type: 
  Country: None (occurrence: None)
  Receive Date: 20060330
  Receipt Date: 20060222
  Transmission Date: 20060701
  Serious: Yes (Life-Threatening, Other)
  Sender: FDA-Public Use
  Company Number: PHBS2006JP03033

PATIENT
  Age: 15 Year
  Sex: Male

DRUGS (5)
  1. METHOTREXATE [Concomitant]
     Indication: CORD BLOOD TRANSPLANT THERAPY
  2. SANDIMMUNE [Suspect]
     Indication: CORD BLOOD TRANSPLANT THERAPY
     Dosage: 75 MG/D
     Route: 041
     Dates: start: 20030408, end: 20030427
  3. IRRADIATION [Concomitant]
     Indication: CORD BLOOD TRANSPLANT THERAPY
  4. CYCLOPHOSPHAMIDE [Concomitant]
     Indication: CORD BLOOD TRANSPLANT THERAPY
  5. VEPESID [Concomitant]
     Indication: CORD BLOOD TRANSPLANT THERAPY

REACTIONS (6)
  - ACUTE LYMPHOCYTIC LEUKAEMIA RECURRENT [None]
  - CORD BLOOD TRANSPLANT THERAPY [None]
  - GRAFT VERSUS HOST DISEASE [None]
  - HERPES ZOSTER [None]
  - INTERSTITIAL LUNG DISEASE [None]
  - SEPSIS [None]
